FAERS Safety Report 7131496-2 (Version None)
Quarter: 2010Q4

REPORT INFORMATION
  Report Type: 
  Country: None (occurrence: None)
  Receive Date: 20101201
  Receipt Date: 20101119
  Transmission Date: 20110411
  Serious: Yes (Other)
  Sender: FDA-Public Use
  Company Number: AT-AMGEN-QUU436560

PATIENT

DRUGS (5)
  1. NPLATE [Suspect]
     Indication: IDIOPATHIC THROMBOCYTOPENIC PURPURA
     Dosage: UNK UNK, QWK
     Dates: start: 20090515
  2. ANTIDEPRESSANTS [Concomitant]
     Dosage: UNK UNK, UNK
     Route: 048
  3. QUETIAPINE [Concomitant]
     Dosage: 200 MG, UNK
     Route: 048
  4. LEVOTHYROXINE SODIUM [Concomitant]
     Dosage: 100 MG, UNK
     Route: 048
  5. ESOMEPRAZOLE MAGNESIUM [Concomitant]
     Dosage: 40 MG, UNK
     Route: 048

REACTIONS (6)
  - DRUG EFFECT DECREASED [None]
  - DRUG SPECIFIC ANTIBODY PRESENT [None]
  - PETECHIAE [None]
  - PLATELET COUNT DECREASED [None]
  - RETICULIN INCREASED [None]
  - TACHYPHYLAXIS [None]
